FAERS Safety Report 7013993-3 (Version None)
Quarter: 2010Q3

REPORT INFORMATION
  Report Type: 
  Country: None (occurrence: None)
  Receive Date: 20100926
  Receipt Date: 20100915
  Transmission Date: 20110219
  Serious: Yes (Death, Hospitalization)
  Sender: FDA-Public Use
  Company Number: DE-BRISTOL-MYERS SQUIBB COMPANY-12667036

PATIENT
  Age: 69 Year
  Sex: Male
  Weight: 93 kg

DRUGS (6)
  1. TAXOL [Suspect]
     Indication: SMALL CELL LUNG CANCER STAGE UNSPECIFIED
     Dosage: START DATE: 10JUN04, 2ND CYC ON 02JUL04;3RD CYC ON 25JUL04
     Route: 042
     Dates: start: 20040725, end: 20040725
  2. CARBOPLATIN [Suspect]
     Indication: SMALL CELL LUNG CANCER STAGE UNSPECIFIED
     Dosage: START DATE: 10JUN04, 2ND CYC ON 02JUL04;3RD CYC ON 25JUL04
     Route: 042
     Dates: start: 20040725, end: 20040725
  3. ETOPOSIDE [Suspect]
     Indication: SMALL CELL LUNG CANCER STAGE UNSPECIFIED
     Dosage: 1ST CYC 07,08,09JUN04, 2ND CYC 29,30JUN04,01JUL04;3RD CYC 22JUL04-25JUL04
     Route: 042
     Dates: start: 20040722, end: 20040724
  4. MORONAL [Concomitant]
     Dates: start: 20040725, end: 20040730
  5. CONCOR [Concomitant]
     Dates: end: 20040730
  6. ESIDRIX [Concomitant]
     Dates: end: 20040730

REACTIONS (6)
  - DIARRHOEA [None]
  - METABOLIC ACIDOSIS [None]
  - NEUTROPENIA [None]
  - RENAL FAILURE [None]
  - SEPSIS [None]
  - VOMITING [None]
